FAERS Safety Report 10023055 (Version 1)
Quarter: 2014Q1

REPORT INFORMATION
  Report Type: Spontaneous
  Country: US (occurrence: US)
  Receive Date: 20140319
  Receipt Date: 20140319
  Transmission Date: 20141002
  Serious: No
  Sender: FDA-Public Use
  Company Number: US-009507513-1403USA005497

PATIENT
  Age: 34 Year
  Sex: Female

DRUGS (2)
  1. PROVENTIL [Suspect]
     Indication: ASTHMA
     Dosage: 2 PUFFS EVERY 4 TO 6 HOURS AS NEEDED AND 15 MINUTES BEFORE EXERCISE, ORAL INHALATION
     Route: 055
     Dates: start: 201310
  2. PROVENTIL [Suspect]
     Dosage: 2 PUFFS EVERY 4 TO 6 HOURS AS NEEDED AND 15 MINUTES BEFORE EXERCISE, ORAL INHALATION
     Route: 055
     Dates: start: 2012, end: 201310

REACTIONS (2)
  - Dysgeusia [Recovered/Resolved]
  - Product quality issue [Unknown]
